FAERS Safety Report 6179558-0 (Version None)
Quarter: 2009Q2

REPORT INFORMATION
  Report Type: 
  Country: None (occurrence: None)
  Receive Date: 20090501
  Receipt Date: 20090501
  Transmission Date: 20091009
  Serious: Yes (Death)
  Sender: FDA-Public Use
  Company Number: None

PATIENT
  Age: 83 Year
  Sex: Male

DRUGS (3)
  1. QUINIDINE HCL [Suspect]
     Indication: VENTRICULAR FIBRILLATION
     Dosage: 324 MG TID PO
     Route: 048
  2. QUINIDINE HCL [Suspect]
     Indication: VENTRICULAR TACHYCARDIA
     Dosage: 324 MG TID PO
     Route: 048
  3. FLUCONAZOLE [Suspect]
     Indication: ORAL CANDIDIASIS
     Dosage: 100 MG DAILY PO
     Route: 048

REACTIONS (9)
  - DIZZINESS [None]
  - DRUG TOXICITY [None]
  - DYSPNOEA [None]
  - ELECTROCARDIOGRAM QT PROLONGED [None]
  - NAUSEA [None]
  - OEDEMA PERIPHERAL [None]
  - ORAL CANDIDIASIS [None]
  - PANCYTOPENIA [None]
  - RENAL IMPAIRMENT [None]
